FAERS Safety Report 10365586 (Version 2)
Quarter: 2014Q3

REPORT INFORMATION
  Report Type: Spontaneous
  Country: US (occurrence: US)
  Receive Date: 20140806
  Receipt Date: 20140918
  Transmission Date: 20150326
  Serious: Yes (Other)
  Sender: FDA-Public Use
  Company Number: US-ACTAVIS-2014-17087

PATIENT
  Age: 49 Year
  Sex: Male
  Weight: 107 kg

DRUGS (2)
  1. DOCETAXEL (ACTAVIS) [Suspect]
     Active Substance: DOCETAXEL
     Indication: PROSTATE CANCER
     Dosage: 75 MG/M2 (TOTAL OF 175 MG)
     Route: 042
  2. DOCETAXEL (ACTAVIS) [Suspect]
     Active Substance: DOCETAXEL
     Dosage: 75 MG/M2 (TOTAL OF 175 MG)
     Route: 042

REACTIONS (6)
  - Eye swelling [Recovering/Resolving]
  - Ocular hyperaemia [Unknown]
  - Lip swelling [Recovering/Resolving]
  - Feeling hot [Recovered/Resolved]
  - Discomfort [Unknown]
  - Erythema [Recovered/Resolved]

NARRATIVE: CASE EVENT DATE: 20140711
